FAERS Safety Report 7908788-X (Version None)
Quarter: 2011Q4

REPORT INFORMATION
  Report Type: 
  Country: None (occurrence: None)
  Receive Date: 20111111
  Receipt Date: 20111102
  Transmission Date: 20120403
  Serious: No
  Sender: FDA-Public Use
  Company Number: US-PFIZER INC-2011272947

PATIENT

DRUGS (1)
  1. TORISEL [Suspect]

REACTIONS (2)
  - PRURITUS [None]
  - RASH MACULAR [None]
